FAERS Safety Report 8571678-6 (Version None)
Quarter: 2012Q3

REPORT INFORMATION
  Report Type: 
  Country: None (occurrence: None)
  Receive Date: 20120806
  Receipt Date: 20120801
  Transmission Date: 20120928
  Serious: Yes (Death)
  Sender: FDA-Public Use
  Company Number: US-JNJFOC-20120801389

PATIENT
  Age: 55 Year
  Sex: Male

DRUGS (4)
  1. UNKNOWN MEDICATION [Concomitant]
     Indication: PRODUCT USED FOR UNKNOWN INDICATION
  2. DURAGESIC-100 [Suspect]
     Route: 062
     Dates: start: 20020101
  3. DURAGESIC-100 [Suspect]
     Indication: CANCER PAIN
     Route: 062
  4. HYDROCODONE BITARTRATE [Concomitant]
     Indication: CANCER PAIN
     Route: 048

REACTIONS (2)
  - DEATH [None]
  - ANALGESIC DRUG LEVEL INCREASED [None]
